FAERS Safety Report 6774223-0 (Version None)
Quarter: 2010Q2

REPORT INFORMATION
  Report Type: 
  Country: None (occurrence: None)
  Receive Date: 20100520
  Receipt Date: 20090521
  Transmission Date: 20101027
  Serious: Yes (Other)
  Sender: FDA-Public Use
  Company Number: 2008053750

PATIENT
  Age: 52 Year
  Sex: Female
  Weight: 69 kg

DRUGS (7)
  1. PROVERA [Suspect]
     Indication: HORMONE REPLACEMENT THERAPY
     Dosage: 10MG AND 5MG, ORAL
     Route: 048
     Dates: start: 19950323, end: 19990916
  2. MEDROXYPROGESTERONE ACETATE [Suspect]
     Indication: HORMONE REPLACEMENT THERAPY
     Dosage: 5 MG, ORAL
     Route: 048
     Dates: start: 19990204, end: 19990527
  3. PREMARIN [Suspect]
     Indication: HORMONE REPLACEMENT THERAPY
     Dosage: 0.625 MG
     Dates: start: 19980128, end: 19990916
  4. ESTRATEST [Suspect]
     Indication: HORMONE REPLACEMENT THERAPY
     Dosage: 0.625/2.5 AND 1.25MG
     Dates: start: 19950323, end: 19990211
  5. PREMPRO [Suspect]
     Indication: HORMONE REPLACEMENT THERAPY
     Dosage: 0.625/5MG
     Dates: start: 19990916, end: 20010807
  6. LEVOTHYROXINE SODIUM [Concomitant]
  7. LIPITOR [Concomitant]

REACTIONS (1)
  - BREAST CANCER FEMALE [None]
